FAERS Safety Report 10518779 (Version 1)
Quarter: 2014Q4

REPORT INFORMATION
  Report Type: Spontaneous
  Country: US (occurrence: None)
  Receive Date: 20141014
  Receipt Date: 20141014
  Transmission Date: 20150528
  Serious: No
  Sender: FDA-Public Use
  Company Number: None

PATIENT
  Age: 35 Year
  Sex: Male
  Weight: 75 kg

DRUGS (2)
  1. DIANAYVONNE SALICYLIC ACID [Suspect]
     Active Substance: SALICYLIC ACID
  2. DIANAYVONNE FRUIT ACID [Suspect]
     Active Substance: COSMETICS
     Indication: SCAR
     Dosage: 3/4 MONTHS OF USE 2 TIMES PER WEEK.

REACTIONS (4)
  - Madarosis [None]
  - Chemical injury [None]
  - Hair growth abnormal [None]
  - Application site discolouration [None]

NARRATIVE: CASE EVENT DATE: 20140515
